FAERS Safety Report 16894881 (Version 1)
Quarter: 2019Q4

REPORT INFORMATION
  Report Type: Spontaneous
  Country: US (occurrence: US)
  Receive Date: 20191008
  Receipt Date: 20191008
  Transmission Date: 20200122
  Serious: No
  Sender: FDA-Public Use
  Company Number: US-INDIVIOR US-INDV-114735-2018

PATIENT
  Sex: Female

DRUGS (9)
  1. SUBOXONE [Suspect]
     Active Substance: BUPRENORPHINE HYDROCHLORIDE\NALOXONE HYDROCHLORIDE
     Indication: DRUG DEPENDENCE
     Dosage: 8MG, FOUR FILMS PER DAY
     Route: 060
  2. NICOTINE. [Concomitant]
     Active Substance: NICOTINE
     Indication: PRODUCT USED FOR UNKNOWN INDICATION
     Dosage: UNK
     Route: 065
  3. BUPRENORPHINE TABLET GENERIC [Suspect]
     Active Substance: BUPRENORPHINE
     Indication: DRUG DEPENDENCE
     Dosage: 8MG, TWO TABLETS A DAY
     Route: 060
     Dates: start: 2013
  4. BUPRENORPHINE TABLET GENERIC [Suspect]
     Active Substance: BUPRENORPHINE
     Dosage: 8MG DAILY, PUT BACK ON TABLETS
     Route: 060
  5. SUBOXONE [Suspect]
     Active Substance: BUPRENORPHINE HYDROCHLORIDE\NALOXONE HYDROCHLORIDE
     Dosage: 8MG, THREE FILMS DAILY
     Route: 060
  6. SUBOXONE [Suspect]
     Active Substance: BUPRENORPHINE HYDROCHLORIDE\NALOXONE HYDROCHLORIDE
     Dosage: 8MG, TWO FILMS PER DAY
     Route: 060
  7. SUBUTEX [Suspect]
     Active Substance: BUPRENORPHINE HYDROCHLORIDE
     Indication: DRUG DEPENDENCE
     Dosage: 8MG, TWO TABLETS A DAY
     Route: 060
     Dates: start: 2013
  8. SUBOXONE [Suspect]
     Active Substance: BUPRENORPHINE HYDROCHLORIDE\NALOXONE HYDROCHLORIDE
     Dosage: UNK, PUT BACK ON 8MG FILM
     Route: 060
  9. BUPRENORPHINE TABLET GENERIC [Suspect]
     Active Substance: BUPRENORPHINE
     Dosage: UNK, TOOK LESS
     Route: 060

REACTIONS (12)
  - Polycystic ovaries [Not Recovered/Not Resolved]
  - Migraine [Not Recovered/Not Resolved]
  - Intentional underdose [Recovered/Resolved]
  - Vomiting [Not Recovered/Not Resolved]
  - Photophobia [Not Recovered/Not Resolved]
  - Hepatitis C [Not Recovered/Not Resolved]
  - Drug dependence [Recovered/Resolved]
  - Prescribed overdose [Recovered/Resolved]
  - Malaise [Not Recovered/Not Resolved]
  - Insomnia [Not Recovered/Not Resolved]
  - Maternal exposure during pregnancy [Recovered/Resolved]
  - Staphylococcal infection [Not Recovered/Not Resolved]
